FAERS Safety Report 11158509 (Version 1)
Quarter: 2015Q2

REPORT INFORMATION
  Report Type: Report from Study
  Country: CZ (occurrence: CZ)
  Receive Date: 20150603
  Receipt Date: 20150603
  Transmission Date: 20150821
  Serious: Yes (Other)
  Sender: FDA-Public Use
  Company Number: CZ-PFIZER INC-2015178347

PATIENT
  Sex: Male

DRUGS (1)
  1. SUTENT [Suspect]
     Active Substance: SUNITINIB MALATE
     Indication: RENAL CELL CARCINOMA
     Dosage: 37.5 MG, CYCLIC, ONCE DAILY, 3 WEEKS ON, 3 WEEKS OFF
     Route: 048
     Dates: start: 20141126, end: 20150330

REACTIONS (7)
  - Swelling face [Unknown]
  - Gingival swelling [Unknown]
  - Erythema of eyelid [Unknown]
  - Tooth abscess [Unknown]
  - Gingival bleeding [Unknown]
  - Gait disturbance [Unknown]
  - Eyelid oedema [Unknown]
